FAERS Safety Report 11256110 (Version 2)
Quarter: 2015Q3

REPORT INFORMATION
  Report Type: Spontaneous
  Country: KZ (occurrence: KZ)
  Receive Date: 20150709
  Receipt Date: 20150714
  Transmission Date: 20151125
  Serious: Yes (Hospitalization, Other)
  Sender: FDA-Public Use
  Company Number: KZ-VIIV HEALTHCARE LIMITED-KZ2015GSK091882

PATIENT
  Age: 9 Year
  Sex: Male

DRUGS (4)
  1. ZIAGEN [Suspect]
     Active Substance: ABACAVIR SULFATE
     Indication: HIV INFECTION
     Dosage: UNK
     Dates: start: 20150113
  2. STOCRIN [Suspect]
     Active Substance: EFAVIRENZ
     Indication: PRODUCT USED FOR UNKNOWN INDICATION
     Dosage: UNK
     Dates: end: 20150105
  3. EPIVIR [Suspect]
     Active Substance: LAMIVUDINE
     Indication: HIV INFECTION
     Dosage: UNK
     Dates: start: 20150113
  4. ALUVIA [Suspect]
     Active Substance: LOPINAVIR\RITONAVIR
     Indication: HIV INFECTION
     Dosage: UNK
     Dates: start: 20150113

REACTIONS (7)
  - Oropharyngeal candidiasis [Recovering/Resolving]
  - Agranulocytosis [Recovering/Resolving]
  - Asthenia [Recovering/Resolving]
  - Aplastic anaemia [Recovering/Resolving]
  - Fatigue [Recovering/Resolving]
  - Hepatitis toxic [Recovering/Resolving]
  - Odynophagia [Recovering/Resolving]
